FAERS Safety Report 21382336 (Version 1)
Quarter: 2022Q3

REPORT INFORMATION
  Report Type: Other
  Country: CN (occurrence: None)
  Receive Date: 20220927
  Receipt Date: 20220927
  Transmission Date: 20221027
  Serious: Yes (Other)
  Sender: FDA-Public Use
  Company Number: CN-ROCHE-3183855

PATIENT
  Age: 53 Year
  Sex: Female

DRUGS (3)
  1. BEVACIZUMAB [Suspect]
     Active Substance: BEVACIZUMAB
     Indication: Lung adenocarcinoma
     Route: 065
  2. AUMOLERTINIB [Suspect]
     Active Substance: AUMOLERTINIB
     Indication: Lung adenocarcinoma
     Route: 048
  3. GEFITINIB [Concomitant]
     Active Substance: GEFITINIB

REACTIONS (4)
  - Epistaxis [Unknown]
  - Hypertension [Unknown]
  - Dysgeusia [Unknown]
  - Hepatotoxicity [Unknown]
